FAERS Safety Report 12365846 (Version 1)
Quarter: 2016Q2

REPORT INFORMATION
  Report Type: Spontaneous
  Country: US (occurrence: US)
  Receive Date: 20160513
  Receipt Date: 20160513
  Transmission Date: 20160815
  Serious: No
  Sender: FDA-Public Use
  Company Number: US-GLAXOSMITHKLINE-US2016064512

PATIENT
  Sex: Male

DRUGS (1)
  1. EXCEDRIN MIGRAINE [Suspect]
     Active Substance: ACETAMINOPHEN\ASPIRIN\CAFFEINE
     Indication: FEELING HOT
     Dosage: UNK
     Route: 048
     Dates: start: 20160504, end: 20160504

REACTIONS (7)
  - Irritability [Unknown]
  - Tremor [Unknown]
  - Adverse event [Unknown]
  - Nervousness [Unknown]
  - Heart rate increased [Unknown]
  - Insomnia [Unknown]
  - Off label use [Unknown]

NARRATIVE: CASE EVENT DATE: 20160504
